FAERS Safety Report 15357711 (Version 3)
Quarter: 2018Q3

REPORT INFORMATION
  Report Type: Report from Study
  Country: US (occurrence: US)
  Receive Date: 20180906
  Receipt Date: 20180927
  Transmission Date: 20181010
  Serious: Yes (Hospitalization)
  Sender: FDA-Public Use
  Company Number: US-ACTELION-A-NJ2018-178182

PATIENT
  Age: 70 Year
  Sex: Female

DRUGS (3)
  1. TEMAZEPAM. [Concomitant]
     Active Substance: TEMAZEPAM
  2. ADCIRCA [Concomitant]
     Active Substance: TADALAFIL
  3. OPSUMIT [Suspect]
     Active Substance: MACITENTAN
     Indication: PULMONARY ARTERIAL HYPERTENSION
     Dosage: 10 MG, QD
     Route: 048
     Dates: start: 20180124

REACTIONS (4)
  - Weight decreased [Not Recovered/Not Resolved]
  - Haemorrhoid operation [Recovered/Resolved]
  - Hospitalisation [Unknown]
  - Headache [Recovered/Resolved]

NARRATIVE: CASE EVENT DATE: 201807
